FAERS Safety Report 16420657 (Version 1)
Quarter: 2019Q2

REPORT INFORMATION
  Report Type: Spontaneous
  Country: US (occurrence: US)
  Receive Date: 20190506
  Receipt Date: 20190506
  Transmission Date: 20190711
  Serious: Yes (Death)
  Sender: FDA-Public Use
  Company Number: None

PATIENT
  Age: 57 Year
  Sex: Male

DRUGS (1)
  1. CYCLOSPORINE CAP  25MG MOD [Suspect]
     Active Substance: CYCLOSPORINE
     Dates: start: 20160316, end: 20190425

REACTIONS (1)
  - Death [None]

NARRATIVE: CASE EVENT DATE: 20190425
